FAERS Safety Report 17036284 (Version 1)
Quarter: 2019Q4

REPORT INFORMATION
  Report Type: Spontaneous
  Country: CH (occurrence: CH)
  Receive Date: 20191115
  Receipt Date: 20191115
  Transmission Date: 20200122
  Serious: Yes (Hospitalization)
  Sender: FDA-Public Use
  Company Number: PHHY2019CH106953

PATIENT
  Sex: Female

DRUGS (4)
  1. XELODA [Concomitant]
     Active Substance: CAPECITABINE
     Indication: METASTASIS
  2. TYVERB [Suspect]
     Active Substance: LAPATINIB
     Indication: INVASIVE BREAST CARCINOMA
     Dosage: 1250 MG, UNK
     Route: 065
     Dates: start: 201806
  3. XELODA [Concomitant]
     Active Substance: CAPECITABINE
     Indication: INVASIVE BREAST CARCINOMA
     Dosage: 1500 MG, BID
     Route: 065
     Dates: start: 201806, end: 2018
  4. TYVERB [Suspect]
     Active Substance: LAPATINIB
     Indication: METASTASIS

REACTIONS (4)
  - Abdominal pain [Unknown]
  - Dehydration [Unknown]
  - Malnutrition [Unknown]
  - Diarrhoea [Unknown]

NARRATIVE: CASE EVENT DATE: 2018
